FAERS Safety Report 5453866-0 (Version None)
Quarter: 2007Q3

REPORT INFORMATION
  Report Type: 
  Country: None (occurrence: None)
  Receive Date: 20070917
  Receipt Date: 20070907
  Transmission Date: 20080115
  Serious: Yes (Other)
  Sender: FDA-Public Use
  Company Number: B0485734A

PATIENT
  Age: 80 Year
  Sex: Male

DRUGS (10)
  1. AUGMENTIN '125' [Suspect]
     Indication: INFECTION
     Dosage: 1TAB TWICE PER DAY
     Route: 048
     Dates: start: 20070826, end: 20070904
  2. NORMACOL PLUS [Concomitant]
     Route: 065
  3. OTODEX [Concomitant]
     Dosage: 2DROP THREE TIMES PER DAY
     Route: 001
  4. PARALGIN [Concomitant]
     Dosage: 500MG AS REQUIRED
     Route: 065
  5. PLAVIX [Concomitant]
     Dosage: 75MG PER DAY
     Route: 065
  6. POLY-TEARS [Concomitant]
     Dosage: 2DROP TWICE PER DAY
     Route: 047
  7. PRAVACHOL [Concomitant]
     Route: 065
  8. RAMIPRIL [Concomitant]
     Route: 065
  9. RHINOCORT [Concomitant]
     Dosage: 2PUFF PER DAY
     Route: 045
  10. VENTOLIN [Concomitant]
     Dosage: 100MCG AS REQUIRED
     Route: 055

REACTIONS (2)
  - CHOKING [None]
  - DYSPHAGIA [None]
